FAERS Safety Report 5306594-6 (Version None)
Quarter: 2007Q2

REPORT INFORMATION
  Report Type: 
  Country: None (occurrence: None)
  Receive Date: 20070418
  Receipt Date: 20070410
  Transmission Date: 20071010
  Serious: Yes (Other)
  Sender: FDA-Public Use
  Company Number: 2007BL001153

PATIENT
  Age: 54 Year
  Sex: Male
  Weight: 113 kg

DRUGS (12)
  1. DEXAMETHASONE [Suspect]
     Indication: DRUG USE FOR UNKNOWN INDICATION
     Dosage: 4 MILLIGRAMS; DAILY; INTRAVENOUS
     Route: 042
     Dates: start: 20070222
  2. KETOPROFEN [Suspect]
     Indication: PREMEDICATION
     Dosage: 100 MILLIGRAMS; DAILY, ORAL
     Route: 048
     Dates: start: 20070222, end: 20070222
  3. MIDAZOLAM HCL [Suspect]
     Indication: DRUG USE FOR UNKNOWN INDICATION
     Dosage: 1 MILLIGRAMS; DAILY, INTRAVENOUS
     Route: 042
     Dates: start: 20070222
  4. OXYGEN (OXYGEN) [Suspect]
     Indication: DRUG USE FOR UNKNOWN INDICATION
     Dates: start: 20070222
  5. PROPOFOL [Suspect]
     Indication: DRUG USE FOR UNKNOWN INDICATION
     Dosage: 1 DOSE FORM; DAILY; INTRAVENOUS
     Route: 042
     Dates: start: 20070222
  6. RANITIDINE [Suspect]
     Indication: DRUG USE FOR UNKNOWN INDICATION
     Dosage: 150 MILLIGRAMS; UNKNOWN; ORAL
     Route: 048
  7. REMIFENTANIL (REMIFENTANIL) [Suspect]
     Indication: DRUG USE FOR UNKNOWN INDICATION
     Dosage: 1 DOSE FORM; DAILY; INTRAVENOUS
     Route: 042
     Dates: start: 20070222
  8. TRAMADOL HCL [Suspect]
     Indication: PERIOPERATIVE ANALGESIA
     Dosage: 100 MILLIGRAMS; DAILY; INTRAVENOUS
     Route: 042
     Dates: start: 20070222, end: 20070222
  9. CHLORPHENIRAMINE MALEATE [Concomitant]
  10. FELODIPINE [Concomitant]
  11. IBUPROFEN [Concomitant]
  12. PARACETAMOL [Concomitant]

REACTIONS (4)
  - DIARRHOEA [None]
  - HYPOTENSION [None]
  - PO2 DECREASED [None]
  - VOMITING [None]
